FAERS Safety Report 23309626 (Version 1)
Quarter: 2023Q4

REPORT INFORMATION
  Report Type: Spontaneous
  Country: US (occurrence: None)
  Receive Date: 20231215
  Receipt Date: 20231215
  Transmission Date: 20240110
  Serious: No
  Sender: FDA-Public Use
  Company Number: None

PATIENT

DRUGS (1)
  1. DEXAMETHASONE [Suspect]
     Active Substance: DEXAMETHASONE

REACTIONS (8)
  - Throat irritation [None]
  - Dry throat [None]
  - Abdominal pain [None]
  - Cough [None]
  - Headache [None]
  - Medication error [None]
  - Illness [None]
  - Incorrect route of product administration [None]

NARRATIVE: CASE EVENT DATE: 20231016
